FAERS Safety Report 13242721 (Version 1)
Quarter: 2017Q1

REPORT INFORMATION
  Report Type: Report from Study
  Country: US (occurrence: US)
  Receive Date: 20170217
  Receipt Date: 20170217
  Transmission Date: 20170428
  Serious: Yes (Other)
  Sender: FDA-Public Use
  Company Number: US-009507513-1702USA005043

PATIENT

DRUGS (3)
  1. TEMODAR [Suspect]
     Active Substance: TEMOZOLOMIDE
     Dosage: 200 MG/M2/DAY ON DAYS 1-5 OF ALL SUBSEQUENT CYCLES (MAXIMUM TOTAL 12 CYCLES)
     Route: 048
  2. AFLIBERCEPT [Concomitant]
     Active Substance: AFLIBERCEPT
     Indication: MALIGNANT GLIOMA
     Dosage: 2 MG/KG EVERY 2 WEEKS/ON DAYS 1 AND 15 OF EVERY CYCLE
     Route: 042
  3. TEMODAR [Suspect]
     Active Substance: TEMOZOLOMIDE
     Indication: MALIGNANT GLIOMA
     Dosage: 150 MG/M2/DAY ON DAY DAYS 1-5 OF THE 1ST 28 DAY-CYCLE
     Route: 048

REACTIONS (1)
  - Neutropenia [Unknown]
